FAERS Safety Report 12222014 (Version 1)
Quarter: 2016Q1

REPORT INFORMATION
  Report Type: Spontaneous
  Country: US (occurrence: US)
  Receive Date: 20160330
  Receipt Date: 20160330
  Transmission Date: 20160526
  Serious: No
  Sender: FDA-Public Use
  Company Number: US-MYLANLABS-2015M1016862

PATIENT
  Age: 83 Year
  Sex: Male
  Weight: 87.53 kg

DRUGS (2)
  1. FENTANYL TRANSDERMAL SYSTEM [Suspect]
     Active Substance: FENTANYL
     Indication: PAIN
     Dosage: 25 ?G, QH, CHANGE Q. 72 HR
     Route: 062
     Dates: start: 20150505, end: 201505
  2. FENTANYL TRANSDERMAL SYSTEM [Suspect]
     Active Substance: FENTANYL
     Indication: MYALGIA

REACTIONS (4)
  - Road traffic accident [Recovered/Resolved]
  - Unevaluable event [Recovered/Resolved]
  - Psychotic disorder [Not Recovered/Not Resolved]
  - Drug effect increased [Recovered/Resolved]

NARRATIVE: CASE EVENT DATE: 20150507
